FAERS Safety Report 9620809 (Version 1)
Quarter: 2013Q4

REPORT INFORMATION
  Report Type: Spontaneous
  Country: US (occurrence: US)
  Receive Date: 20131015
  Receipt Date: 20131015
  Transmission Date: 20140711
  Serious: No
  Sender: FDA-Public Use
  Company Number: US-009507513-1310USA005287

PATIENT
  Age: 23 Year
  Sex: Female
  Weight: 114.47 kg

DRUGS (1)
  1. NEXPLANON [Suspect]
     Indication: CONTRACEPTION
     Dosage: UNK
     Route: 059
     Dates: start: 201303, end: 20131001

REACTIONS (2)
  - Device breakage [Recovered/Resolved]
  - Pain in extremity [Recovered/Resolved]
